FAERS Safety Report 5761986-6 (Version None)
Quarter: 2008Q2

REPORT INFORMATION
  Report Type: 
  Country: None (occurrence: None)
  Receive Date: 20080603
  Receipt Date: 20080523
  Transmission Date: 20081010
  Serious: Yes (Death)
  Sender: FDA-Public Use
  Company Number: GXKR2008GH04782

PATIENT
  Sex: Male

DRUGS (1)
  1. LENDACIN                 (CEFTRIAXONE) [Suspect]
     Indication: FEBRILE INFECTION
     Dosage: 1 G, 4 INJECTIONS, INTRAVENOUS
     Route: 042

REACTIONS (1)
  - DRUG INEFFECTIVE [None]
